FAERS Safety Report 20590266 (Version 1)
Quarter: 2022Q1

REPORT INFORMATION
  Report Type: Spontaneous
  Country: FR (occurrence: FR)
  Receive Date: 20220314
  Receipt Date: 20220314
  Transmission Date: 20220423
  Serious: Yes (Other)
  Sender: FDA-Public Use
  Company Number: None

PATIENT
  Age: 47 Year
  Sex: Male

DRUGS (3)
  1. ALPRAZOLAM [Suspect]
     Active Substance: ALPRAZOLAM
     Dosage: 60 TABLETS OF 0.25 MG IN TWO DAYS
  2. HEROIN [Suspect]
     Active Substance: DIAMORPHINE
     Dosage: UNK
     Route: 045
  3. OXAZEPAM [Suspect]
     Active Substance: OXAZEPAM
     Dosage: 20 X 50 MG IN TWO DAYS

REACTIONS (2)
  - Intentional overdose [Unknown]
  - Poisoning [Recovered/Resolved]

NARRATIVE: CASE EVENT DATE: 20210828
